FAERS Safety Report 8253755-2 (Version None)
Quarter: 2012Q2

REPORT INFORMATION
  Report Type: 
  Country: None (occurrence: None)
  Receive Date: 20120402
  Receipt Date: 20120313
  Transmission Date: 20120825
  Serious: No
  Sender: FDA-Public Use
  Company Number: US-AMGEN-USASP2012014669

PATIENT
  Age: 64 Year
  Sex: Male

DRUGS (3)
  1. AMLACTIN [Concomitant]
     Indication: PSORIASIS
     Dosage: BID
     Dates: start: 20120101
  2. ENBREL [Suspect]
     Indication: PSORIASIS
     Dosage: 50 MG, 2 TIMES/WK
     Dates: start: 20111231
  3. DOVONEX [Concomitant]
     Indication: PSORIASIS
     Dosage: BID
     Dates: start: 20120101

REACTIONS (6)
  - DRUG INEFFECTIVE [None]
  - HYPERSENSITIVITY [None]
  - INJECTION SITE ERYTHEMA [None]
  - INJECTION SITE REACTION [None]
  - INJECTION SITE PAIN [None]
  - INJECTION SITE SWELLING [None]
